FAERS Safety Report 7812654-8 (Version None)
Quarter: 2011Q4

REPORT INFORMATION
  Report Type: 
  Country: None (occurrence: None)
  Receive Date: 20111011
  Receipt Date: 20110922
  Transmission Date: 20120403
  Serious: Yes (Other)
  Sender: FDA-Public Use
  Company Number: 1000024025

PATIENT
  Sex: Female

DRUGS (14)
  1. DEPAKENE-R (VALPROATE SODIUM)(VALPROATE SODIUM) [Concomitant]
  2. MEMANTINE [Suspect]
     Indication: DEMENTIA ALZHEIMER'S TYPE
     Dosage: 5 MG (5 MG, 1 IN 1 D),ORAL, 10 MG (10 MG,1 IN 1 D),ORAL, 15 MG (15 MG,1 IN 1 D)
     Route: 048
     Dates: start: 20110612, end: 20110618
  3. MEMANTINE [Suspect]
     Indication: BEHAVIOURAL AND PSYCHIATRIC SYMPTOMS OF DEMENTIA
     Dosage: 5 MG (5 MG, 1 IN 1 D),ORAL, 10 MG (10 MG,1 IN 1 D),ORAL, 15 MG (15 MG,1 IN 1 D)
     Route: 048
     Dates: start: 20110612, end: 20110618
  4. MEMANTINE [Suspect]
     Indication: DEMENTIA ALZHEIMER'S TYPE
     Dosage: 5 MG (5 MG, 1 IN 1 D),ORAL, 10 MG (10 MG,1 IN 1 D),ORAL, 15 MG (15 MG,1 IN 1 D)
     Route: 048
     Dates: start: 20110629, end: 20110705
  5. MEMANTINE [Suspect]
     Indication: BEHAVIOURAL AND PSYCHIATRIC SYMPTOMS OF DEMENTIA
     Dosage: 5 MG (5 MG, 1 IN 1 D),ORAL, 10 MG (10 MG,1 IN 1 D),ORAL, 15 MG (15 MG,1 IN 1 D)
     Route: 048
     Dates: start: 20110629, end: 20110705
  6. MEMANTINE [Suspect]
     Indication: DEMENTIA ALZHEIMER'S TYPE
     Dosage: 5 MG (5 MG, 1 IN 1 D),ORAL, 10 MG (10 MG,1 IN 1 D),ORAL, 15 MG (15 MG,1 IN 1 D)
     Route: 048
     Dates: start: 20110619, end: 20110628
  7. MEMANTINE [Suspect]
     Indication: BEHAVIOURAL AND PSYCHIATRIC SYMPTOMS OF DEMENTIA
     Dosage: 5 MG (5 MG, 1 IN 1 D),ORAL, 10 MG (10 MG,1 IN 1 D),ORAL, 15 MG (15 MG,1 IN 1 D)
     Route: 048
     Dates: start: 20110619, end: 20110628
  8. MICOMBI AP (TELMISARTAN, HYDROCHLOROTHIAZIDE)(TELMISARTAN, HYDROCHLORO [Concomitant]
  9. DIURETICS (DIURETICS) [Suspect]
  10. ARICEPT [Concomitant]
  11. MEMANTINE [Suspect]
     Indication: DEMENTIA ALZHEIMER'S TYPE
     Dosage: 20 MG (20 MG, 1 IN 1 D),ORAL, 15 MG (15 MG,1 IN 1 D),ORAL
     Route: 048
     Dates: start: 20110706, end: 20110807
  12. MEMANTINE [Suspect]
     Indication: BEHAVIOURAL AND PSYCHIATRIC SYMPTOMS OF DEMENTIA
     Dosage: 20 MG (20 MG, 1 IN 1 D),ORAL, 15 MG (15 MG,1 IN 1 D),ORAL
     Route: 048
     Dates: start: 20110706, end: 20110807
  13. MEMANTINE [Suspect]
     Indication: DEMENTIA ALZHEIMER'S TYPE
     Dosage: 20 MG (20 MG, 1 IN 1 D),ORAL, 15 MG (15 MG,1 IN 1 D),ORAL
     Route: 048
     Dates: start: 20110629, end: 20110705
  14. MEMANTINE [Suspect]
     Indication: BEHAVIOURAL AND PSYCHIATRIC SYMPTOMS OF DEMENTIA
     Dosage: 20 MG (20 MG, 1 IN 1 D),ORAL, 15 MG (15 MG,1 IN 1 D),ORAL
     Route: 048
     Dates: start: 20110629, end: 20110705

REACTIONS (8)
  - BLOOD PRESSURE DECREASED [None]
  - HAEMOGLOBIN DECREASED [None]
  - ATAXIA [None]
  - SOMNOLENCE [None]
  - RESTLESSNESS [None]
  - RED BLOOD CELL COUNT DECREASED [None]
  - AGITATION [None]
  - DIZZINESS [None]
